FAERS Safety Report 9272981 (Version 3)
Quarter: 2013Q2

REPORT INFORMATION
  Report Type: Spontaneous
  Country: US (occurrence: US)
  Receive Date: 20130506
  Receipt Date: 20130528
  Transmission Date: 20140414
  Serious: Yes (Hospitalization, Other)
  Sender: FDA-Public Use
  Company Number: US-BAYER-2013-054284

PATIENT
  Age: 58 Year
  Sex: Male
  Weight: 113.38 kg

DRUGS (7)
  1. ALEVE CAPLET [Suspect]
     Indication: ARTHRITIS
     Dosage: 2 DF, BID
     Route: 048
     Dates: start: 2010
  2. ALEVE CAPLET [Suspect]
     Indication: ARTHRITIS
     Dosage: 2 DF, UNK
     Route: 048
  3. BAYER GENUINE ASPIRIN ORIGINAL STRENGTH [Suspect]
     Dosage: 2 DF, PRN
     Route: 048
  4. LISINOPRIL [Concomitant]
     Dosage: 20 MG, UNK
  5. VITAMIN C [Concomitant]
  6. COUMADIN [Concomitant]
  7. ASPIRIN [Concomitant]
     Dosage: 25 MG, UNK

REACTIONS (17)
  - Haemoptysis [Recovered/Resolved]
  - Upper respiratory tract infection [Recovered/Resolved]
  - Lower respiratory tract infection [Recovered/Resolved]
  - Pericardial effusion [None]
  - Renal failure acute [None]
  - Blood creatine increased [None]
  - Oedema peripheral [None]
  - Abdominal distension [Not Recovered/Not Resolved]
  - Constipation [Not Recovered/Not Resolved]
  - Bowel movement irregularity [Not Recovered/Not Resolved]
  - Muscle spasms [Not Recovered/Not Resolved]
  - Chromaturia [Not Recovered/Not Resolved]
  - Urine odour abnormal [Not Recovered/Not Resolved]
  - Lethargy [Not Recovered/Not Resolved]
  - Incorrect drug administration duration [None]
  - Incorrect dose administered [None]
  - Drug effect incomplete [None]
